FAERS Safety Report 5043318-4 (Version None)
Quarter: 2006Q2

REPORT INFORMATION
  Report Type: 
  Country: None (occurrence: None)
  Receive Date: 20060601
  Receipt Date: 20060301
  Transmission Date: 20061013
  Serious: No
  Sender: FDA-Public Use
  Company Number: 2006PV009505

PATIENT
  Age: 64 Year
  Sex: Male
  Weight: 120.2032 kg

DRUGS (4)
  1. BYETTA [Suspect]
     Indication: DIABETES MELLITUS NON-INSULIN-DEPENDENT
     Dosage: SEE IMAGE
     Route: 058
     Dates: start: 20051216, end: 20051218
  2. BYETTA [Suspect]
     Indication: DIABETES MELLITUS NON-INSULIN-DEPENDENT
     Dosage: SEE IMAGE
     Route: 058
     Dates: start: 20060118, end: 20060120
  3. LANTUS [Concomitant]
  4. HUMALOG [Concomitant]

REACTIONS (4)
  - ANOREXIA [None]
  - INSOMNIA [None]
  - NAUSEA [None]
  - RETCHING [None]
